FAERS Safety Report 10436268 (Version 1)
Quarter: 2014Q3

REPORT INFORMATION
  Report Type: Spontaneous
  Country: US (occurrence: US)
  Receive Date: 20140908
  Receipt Date: 20140908
  Transmission Date: 20150326
  Serious: Yes (Hospitalization, Other)
  Sender: FDA-Public Use
  Company Number: US-JNJFOC-20140902912

PATIENT
  Age: 12 Year
  Sex: Male

DRUGS (7)
  1. STEROIDS NOS [Suspect]
     Active Substance: UNSPECIFIED INGREDIENT
     Indication: COLITIS
     Route: 065
  2. 6-MERCAPTOPURINE [Suspect]
     Active Substance: MERCAPTOPURINE
     Indication: COLITIS
     Route: 065
  3. 6-MERCAPTOPURINE [Suspect]
     Active Substance: MERCAPTOPURINE
     Indication: COLITIS
     Route: 065
  4. INFLIXIMAB, RECOMBINANT [Suspect]
     Active Substance: INFLIXIMAB
     Indication: COLITIS
     Route: 042
  5. INFLIXIMAB, RECOMBINANT [Suspect]
     Active Substance: INFLIXIMAB
     Indication: COLITIS
     Route: 042
  6. ALLOPURINOL. [Suspect]
     Active Substance: ALLOPURINOL
     Indication: COLITIS
     Route: 065
  7. ALLOPURINOL. [Suspect]
     Active Substance: ALLOPURINOL
     Indication: COLITIS
     Route: 065

REACTIONS (4)
  - Pyrexia [Recovered/Resolved]
  - Drug ineffective [Unknown]
  - Leukopenia [Recovering/Resolving]
  - Diarrhoea [Recovered/Resolved]
